FAERS Safety Report 9074021 (Version 1)
Quarter: 2013Q1

REPORT INFORMATION
  Report Type: Report from Study
  Country: US (occurrence: US)
  Receive Date: 20130129
  Receipt Date: 20130129
  Transmission Date: 20140127
  Serious: Yes (Hospitalization, Other)
  Sender: FDA-Public Use
  Company Number: US-ABBOTT-12P-163-0911803-00

PATIENT
  Age: 45 None
  Sex: Female
  Weight: 111.05 kg

DRUGS (6)
  1. HUMIRA 40 MG/0.8 ML PEN [Suspect]
     Indication: PSORIATIC ARTHROPATHY
     Dates: end: 201111
  2. NEURONTIN [Concomitant]
     Indication: PRODUCT USED FOR UNKNOWN INDICATION
     Dosage: 1800 MG DAILY
  3. LEXAPRO [Concomitant]
     Indication: PRODUCT USED FOR UNKNOWN INDICATION
     Dosage: 10 MG DAILY
  4. COUMADIN [Concomitant]
     Indication: PRODUCT USED FOR UNKNOWN INDICATION
     Dosage: 7.5 MG M-W-F/ REST OF WEEK 11.25MG
  5. XANAX [Concomitant]
     Indication: PRODUCT USED FOR UNKNOWN INDICATION
  6. ALEVE [Concomitant]
     Indication: PRODUCT USED FOR UNKNOWN INDICATION

REACTIONS (10)
  - Subcutaneous abscess [Recovered/Resolved]
  - Staphylococcal infection [Recovered/Resolved]
  - Pain [Unknown]
  - Hyperhidrosis [Unknown]
  - Malaise [Recovered/Resolved]
  - Urinary tract infection bacterial [Unknown]
  - Pain [Unknown]
  - Dyspnoea [Unknown]
  - Local swelling [Unknown]
  - Weight decreased [Unknown]
